FAERS Safety Report 9129508 (Version 1)
Quarter: 2013Q1

REPORT INFORMATION
  Report Type: Report from Study
  Country: US (occurrence: US)
  Receive Date: 20130125
  Receipt Date: 20130125
  Transmission Date: 20140127
  Serious: Yes (Hospitalization)
  Sender: FDA-Public Use
  Company Number: US-ACTELION-A-US2012-71939

PATIENT
  Age: 62 Year
  Sex: Female

DRUGS (2)
  1. VELETRI [Suspect]
     Indication: PULMONARY ARTERIAL HYPERTENSION
     Dosage: 57 UNK, UNK
     Route: 042
     Dates: start: 20111208
  2. VELETRI [Suspect]
     Dosage: 57 NG/KG, PER MIN
     Route: 042
     Dates: start: 20110930

REACTIONS (7)
  - Skin discolouration [Unknown]
  - Hypersensitivity [Recovering/Resolving]
  - Device related infection [Recovering/Resolving]
  - Catheter placement [Recovering/Resolving]
  - Dyspnoea [Recovering/Resolving]
  - Medical device complication [Recovering/Resolving]
  - Device leakage [Recovering/Resolving]
